FAERS Safety Report 25448606 (Version 1)
Quarter: 2025Q2

REPORT INFORMATION
  Report Type: Spontaneous
  Country: PL (occurrence: PL)
  Receive Date: 20250618
  Receipt Date: 20250618
  Transmission Date: 20250717
  Serious: Yes (Other)
  Sender: ACCORD
  Company Number: None

PATIENT
  Age: 54 Year
  Sex: Female
  Weight: 65 kg

DRUGS (1)
  1. SERTRALINE [Suspect]
     Active Substance: SERTRALINE HYDROCHLORIDE
     Indication: Toxicity to various agents

REACTIONS (4)
  - Suicide attempt [Unknown]
  - Toxicity to various agents [Unknown]
  - Somnolence [Unknown]
  - Balance disorder [Unknown]

NARRATIVE: CASE EVENT DATE: 20210327
